FAERS Safety Report 24399468 (Version 3)
Quarter: 2025Q4

REPORT INFORMATION
  Report Type: Report from Study
  Country: US (occurrence: US)
  Receive Date: 20241005
  Receipt Date: 20251205
  Transmission Date: 20260117
  Serious: Yes (Hospitalization)
  Sender: ABBVIE
  Company Number: US-ABBVIE-5949503

PATIENT
  Age: 44 Year
  Sex: Female

DRUGS (1)
  1. SKYRIZI [Suspect]
     Active Substance: RISANKIZUMAB-RZAA
     Indication: Crohn^s disease
     Route: 042
     Dates: start: 20230801, end: 2025

REACTIONS (5)
  - Colonic abscess [Not Recovered/Not Resolved]
  - Crohn^s disease [Unknown]
  - Pain [Unknown]
  - Feeling abnormal [Unknown]
  - Gastrointestinal injury [Not Recovered/Not Resolved]
